FAERS Safety Report 15662486 (Version 8)
Quarter: 2020Q3

REPORT INFORMATION
  Report Type: Spontaneous
  Country: FR (occurrence: FR)
  Receive Date: 20181127
  Receipt Date: 20200911
  Transmission Date: 20201102
  Serious: Yes (Hospitalization, Other)
  Sender: FDA-Public Use
  Company Number: FR-MYLANLABS-2018M1088229

PATIENT
  Age: 48 Year
  Sex: Female
  Weight: 72 kg

DRUGS (15)
  1. LERCAN [Suspect]
     Active Substance: LERCANIDIPINE
     Indication: PRODUCT USED FOR UNKNOWN INDICATION
     Dosage: 10 MILLIGRAM, QD
     Route: 065
  2. KETAMINE [Suspect]
     Active Substance: KETAMINE
     Indication: PRODUCT USED FOR UNKNOWN INDICATION
     Dosage: 50 MILLIGRAM, MONTHLY (50MG EN JUILLET 2014, OCTOBRE 2014, NOVEMBRE 2014 )
     Route: 041
     Dates: start: 201407, end: 201407
  3. SKENAN [Suspect]
     Active Substance: MORPHINE SULFATE
     Indication: PRODUCT USED FOR UNKNOWN INDICATION
     Dosage: 40 MILLIGRAM, BID
     Route: 048
  4. LYRICA [Suspect]
     Active Substance: PREGABALIN
     Indication: PRODUCT USED FOR UNKNOWN INDICATION
     Dosage: 20 MILLIGRAM, QD
     Route: 048
     Dates: start: 201209, end: 20150101
  5. INEXIUM                            /01479302/ [Suspect]
     Active Substance: ESOMEPRAZOLE MAGNESIUM
     Indication: PRODUCT USED FOR UNKNOWN INDICATION
     Dosage: UNK
     Route: 048
  6. HYDROCORTISONE. [Suspect]
     Active Substance: HYDROCORTISONE
     Indication: PRODUCT USED FOR UNKNOWN INDICATION
     Dosage: 20 MILLIGRAM, QD
     Route: 065
  7. KETAMINE [Suspect]
     Active Substance: KETAMINE
     Dosage: 70 MILLIGRAM, MONTHLY, (70 MG, QMO)
     Route: 041
     Dates: start: 201501, end: 201502
  8. PARACETAMOL [Suspect]
     Active Substance: ACETAMINOPHEN
     Indication: PRODUCT USED FOR UNKNOWN INDICATION
     Dosage: UNK
     Route: 065
  9. LYRICA [Suspect]
     Active Substance: PREGABALIN
     Dosage: UNK
     Route: 048
  10. SKENAN [Suspect]
     Active Substance: MORPHINE SULFATE
     Dosage: 80 MILLIGRAM, QD
     Route: 065
  11. KETAMINE [Suspect]
     Active Substance: KETAMINE
     Dosage: 50 MILLIGRAM, MONTHLY
     Route: 041
     Dates: start: 201411
  12. KETAMINE [Suspect]
     Active Substance: KETAMINE
     Dosage: 70 MILLIGRAM, MONTHLY
     Route: 041
     Dates: start: 201502
  13. SKENAN [Suspect]
     Active Substance: MORPHINE SULFATE
     Dosage: 40 MILLIGRAM, QD
     Route: 048
  14. SKENAN [Suspect]
     Active Substance: MORPHINE SULFATE
     Dosage: 80 MILLIGRAM, QD
     Route: 048
  15. KETAMINE [Suspect]
     Active Substance: KETAMINE
     Dosage: 50 MILLIGRAM, MONTHLY, (50 MG, QMO)
     Route: 041
     Dates: start: 201410, end: 201411

REACTIONS (1)
  - Hepatocellular injury [Recovered/Resolved]

NARRATIVE: CASE EVENT DATE: 20150323
